FAERS Safety Report 12067888 (Version 1)
Quarter: 2016Q1

REPORT INFORMATION
  Report Type: Spontaneous
  Country: US (occurrence: US)
  Receive Date: 20160211
  Receipt Date: 20160211
  Transmission Date: 20160526
  Serious: No
  Sender: FDA-Public Use
  Company Number: US-SMITH AND NEPHEW, INC-2015SMT00131

PATIENT
  Age: 73 Year
  Sex: Male

DRUGS (9)
  1. DOXYCYCLINE. [Concomitant]
     Active Substance: DOXYCYCLINE
  2. CIPROFLOXACIN. [Concomitant]
     Active Substance: CIPROFLOXACIN
  3. GABAPENTIN. [Concomitant]
     Active Substance: GABAPENTIN
  4. SIMVASTATIN. [Concomitant]
     Active Substance: SIMVASTATIN
  5. LANTUS [Concomitant]
     Active Substance: INSULIN GLARGINE
     Dosage: 26 U, 1X/DAY
  6. FUROSEMIDE. [Concomitant]
     Active Substance: FUROSEMIDE
  7. REGRANEX [Suspect]
     Active Substance: BECAPLERMIN
     Indication: WOUND
     Dosage: 1 DOSAGE UNITS, ONCE
     Route: 061
     Dates: start: 20150610, end: 20150610
  8. INSULIN (SLIDING SCALE) [Concomitant]
     Dosage: UNK UNK, 1X/DAY
  9. WARFARIN SODIUM. [Concomitant]
     Active Substance: WARFARIN SODIUM

REACTIONS (2)
  - Wound complication [Not Recovered/Not Resolved]
  - Wound secretion [Not Recovered/Not Resolved]

NARRATIVE: CASE EVENT DATE: 20150611
